FAERS Safety Report 7373337 (Version 2)
Quarter: 2012Q4

REPORT INFORMATION
  Report Type: 
  Country: US (occurrence: US)
  Receive Date: 20100503
  Receipt Date: 20120905
  Transmission Date: 20130627
  Serious: Yes (Hospitalization)
  Sender: FDA-Public Use
  Company Number: US-ASTRAZENECA-2009SE32232

PATIENT
  Age: 93 Year
  Sex: Female
  Weight: 55.3 kg

DRUGS (10)
  1. NEXIUM [Suspect]
     Indication: GASTROOESOPHAGEAL REFLUX DISEASE
     Route: 048
  2. NEXIUM [Suspect]
     Indication: GASTROOESOPHAGEAL REFLUX DISEASE
     Route: 048
  3. NEXIUM [Suspect]
     Indication: GASTROOESOPHAGEAL REFLUX DISEASE
     Route: 048
  4. PROPANOLOL [Concomitant]
     Indication: HYPERTENSION
  5. PROPANOLOL [Concomitant]
     Indication: TREMOR
  6. LOVASTATIN [Concomitant]
     Indication: BLOOD CHOLESTEROL INCREASED
  7. DOXYCYCLINE [Concomitant]
  8. METHYLPREDNISOLONE [Concomitant]
  9. AZITHROMYCIN [Concomitant]
     Indication: BRONCHITIS
  10. AMBIEN [Concomitant]

REACTIONS (6)
  - Upper limb fracture [Recovered/Resolved]
  - Fall [Unknown]
  - Hip fracture [Recovered/Resolved]
  - Bronchitis [Unknown]
  - Body height decreased [Unknown]
  - Intentional drug misuse [Unknown]
